FAERS Safety Report 12990747 (Version 3)
Quarter: 2017Q1

REPORT INFORMATION
  Report Type: Other
  Country: JP (occurrence: JP)
  Receive Date: 20161201
  Receipt Date: 20170223
  Transmission Date: 20170428
  Serious: Yes (Hospitalization)
  Sender: FDA-Public Use
  Company Number: JP-CELLTRION INC.-2015JP010621

PATIENT

DRUGS (23)
  1. INFLIXIMAB BS FOR I.V. INFUSION100 MG [NK] [Suspect]
     Active Substance: INFLIXIMAB
     Dosage: 5 MG/KG/DAY
     Route: 042
     Dates: start: 20160608, end: 20160608
  2. SOL-MELCORT [Concomitant]
     Active Substance: METHYLPREDNISOLONE SODIUM SUCCINATE
     Indication: PROPHYLAXIS
     Dosage: 250 MG, DAILY
     Dates: start: 20151109
  3. PENTASA [Concomitant]
     Active Substance: MESALAMINE
     Dosage: 4000 MG, DAILY
     Dates: start: 20160608
  4. INFLIXIMAB BS FOR I.V. INFUSION100 MG [NK] [Suspect]
     Active Substance: INFLIXIMAB
     Dosage: 5 MG/KG/DAY
     Route: 042
     Dates: start: 20160413, end: 20160413
  5. FESIN                              /00023550/ [Concomitant]
     Active Substance: IRON SUCROSE
     Indication: ANAEMIA
     Dosage: 80 MG, DAILY
     Dates: start: 20160413, end: 20160416
  6. PREDONEMA [Concomitant]
     Active Substance: PREDNISOLONE SODIUM PHOSPHATE
     Indication: COLITIS ULCERATIVE
     Dosage: 20 MG, DAILY
     Dates: start: 20160414, end: 20160427
  7. FERRO-GRADUMET                     /00023503/ [Concomitant]
     Indication: ANAEMIA
     Dosage: 105 MG, DAILY
     Dates: start: 20160416
  8. INFLIXIMAB BS FOR I.V. INFUSION100 MG [NK] [Suspect]
     Active Substance: INFLIXIMAB
     Dosage: 5 MG/KG/DAY
     Route: 042
     Dates: start: 20151221, end: 20151221
  9. INFLIXIMAB BS FOR I.V. INFUSION100 MG [NK] [Suspect]
     Active Substance: INFLIXIMAB
     Dosage: 5 MG/KG/DAY
     Route: 042
     Dates: start: 20160217, end: 20160217
  10. ASACOL [Concomitant]
     Active Substance: MESALAMINE
     Indication: COLITIS ULCERATIVE
     Dosage: 3600 MG, DAILY
     Dates: start: 20140926, end: 20160607
  11. ADALAT [Concomitant]
     Active Substance: NIFEDIPINE
     Dosage: 20 MG, DAILY
  12. MIYA-BM [Concomitant]
     Active Substance: CLOSTRIDIUM BUTYRICUM SPORES STRAIN M-55
     Indication: COLITIS ULCERATIVE
     Dosage: 3 DF, DAILY
     Dates: start: 20150624
  13. INFLIXIMAB BS FOR I.V. INFUSION100 MG [NK] [Suspect]
     Active Substance: INFLIXIMAB
     Dosage: 5 MG/KG/DAY
     Route: 042
     Dates: start: 20151116, end: 20151116
  14. TRAZENTA [Concomitant]
     Active Substance: LINAGLIPTIN
     Indication: DIABETES MELLITUS
     Dosage: 5 MG, DAILY
     Dates: start: 20151116
  15. AMARYL [Concomitant]
     Active Substance: GLIMEPIRIDE
     Indication: DIABETES MELLITUS
     Dosage: 2 MG, DAILY
     Dates: start: 20090106
  16. PENTASA [Concomitant]
     Active Substance: MESALAMINE
     Indication: COLITIS ULCERATIVE
     Dosage: 1 DF, DAILY
     Dates: start: 20160428
  17. MYSLEE [Concomitant]
     Active Substance: ZOLPIDEM TARTRATE
     Indication: INSOMNIA
     Dosage: 10 MG, DAILY
     Dates: start: 20090106
  18. PARIET [Concomitant]
     Active Substance: RABEPRAZOLE SODIUM
     Indication: PROPHYLAXIS AGAINST GASTROINTESTINAL ULCER
     Dosage: 10 MG, DAILY
     Dates: start: 20150624
  19. ADALAT [Concomitant]
     Active Substance: NIFEDIPINE
     Indication: HYPERTENSION
     Dosage: 40 MG, DAILY
     Dates: start: 20081211
  20. IMURAN [Concomitant]
     Active Substance: AZATHIOPRINE
     Indication: COLITIS ULCERATIVE
     Dosage: 25 MG, DAILY
     Dates: start: 20160415
  21. ROCEPHIN [Concomitant]
     Active Substance: CEFTRIAXONE SODIUM
     Indication: COLITIS ULCERATIVE
     Dosage: 2 G, DAILY
     Dates: start: 20160413, end: 20160415
  22. INFLIXIMAB BS FOR I.V. INFUSION100 MG [NK] [Suspect]
     Active Substance: INFLIXIMAB
     Indication: COLITIS ULCERATIVE
     Dosage: 5 MG/KG/DAY
     Route: 042
     Dates: start: 20151109, end: 20151109
  23. INFLIXIMAB BS FOR I.V. INFUSION100 MG [NK] [Suspect]
     Active Substance: INFLIXIMAB
     Dosage: 5 MG/KG/DAY
     Route: 042
     Dates: start: 20151125, end: 20151125

REACTIONS (8)
  - Abdominal pain [Not Recovered/Not Resolved]
  - Urticaria [Recovered/Resolved]
  - Diabetes mellitus [Recovering/Resolving]
  - Diarrhoea [Not Recovered/Not Resolved]
  - Nausea [Not Recovered/Not Resolved]
  - Rash [Recovered/Resolved]
  - Pruritus [Unknown]
  - Melaena [Not Recovered/Not Resolved]

NARRATIVE: CASE EVENT DATE: 20151116
